FAERS Safety Report 5244324-7 (Version None)
Quarter: 2007Q1

REPORT INFORMATION
  Report Type: 
  Country: None (occurrence: None)
  Receive Date: 20070222
  Receipt Date: 20070212
  Transmission Date: 20070707
  Serious: Yes (Death, Hospitalization)
  Sender: FDA-Public Use
  Company Number: HQWYE725009FEB06

PATIENT
  Age: 84 Year
  Sex: Male

DRUGS (14)
  1. INIPOMP [Suspect]
     Indication: ABDOMINAL PAIN UPPER
     Dosage: UNKNOWN
     Route: 048
     Dates: start: 20050322, end: 20050324
  2. INIPOMP [Suspect]
     Indication: PELVIC PAIN
  3. HYPNOVEL [Concomitant]
     Dosage: ^DF^
     Route: 065
     Dates: start: 20050322, end: 20050322
  4. LOVENOX [Concomitant]
     Dosage: ^DF^
     Route: 030
     Dates: start: 20050322, end: 20050322
  5. PERFALGAN [Concomitant]
     Dosage: ^DF^
     Route: 042
     Dates: start: 20050322, end: 20050323
  6. PERFALGAN [Concomitant]
     Dosage: ^DF^
     Route: 042
     Dates: start: 20050328, end: 20050329
  7. DURAGESIC-100 [Concomitant]
     Dosage: ^DF^
     Route: 062
  8. LYTOS [Concomitant]
     Dosage: ^DF^
     Route: 048
  9. CORTANCYL [Concomitant]
     Dosage: ^DF^
     Route: 048
  10. ARICEPT [Concomitant]
     Dosage: ^DF^
     Route: 048
  11. PYOSTACINE [Concomitant]
     Dosage: ^DF^
     Route: 048
  12. FLUIMUCIL [Concomitant]
     Dosage: UNKNOWN
     Route: 065
  13. KEFANDOL [Suspect]
     Indication: PROPHYLAXIS
     Dosage: ^DF^
     Route: 065
     Dates: start: 20050322, end: 20050324
  14. ESTRACYT [Concomitant]
     Dosage: ^DF^
     Route: 048

REACTIONS (6)
  - CEREBRAL HAEMORRHAGE [None]
  - COMA [None]
  - GINGIVAL BLEEDING [None]
  - HAEMATURIA [None]
  - PANCYTOPENIA [None]
  - PETECHIAE [None]
